FAERS Safety Report 23107167 (Version 2)
Quarter: 2023Q4

REPORT INFORMATION
  Report Type: Spontaneous
  Country: DE (occurrence: DE)
  Receive Date: 20231026
  Receipt Date: 20231202
  Transmission Date: 20240109
  Serious: Yes (Hospitalization, Other)
  Sender: FDA-Public Use
  Company Number: DE-002147023-NVSC2023DE220152

PATIENT
  Sex: Male
  Weight: 22.1 kg

DRUGS (4)
  1. AMOXICILLIN\CLAVULANIC ACID [Suspect]
     Active Substance: AMOXICILLIN\CLAVULANIC ACID
     Indication: Lymphangitis
     Dosage: UNK
     Route: 042
     Dates: start: 2023
  2. AMOXICILLIN\CLAVULANIC ACID [Suspect]
     Active Substance: AMOXICILLIN\CLAVULANIC ACID
     Indication: Arthropod bite
  3. ILARIS [Suspect]
     Active Substance: CANAKINUMAB
     Indication: Still^s disease
     Dosage: UNK
     Route: 065
     Dates: start: 201904
  4. ILARIS [Suspect]
     Active Substance: CANAKINUMAB
     Dosage: 75 MG, Q6 WEEKS
     Route: 042
     Dates: start: 20220301

REACTIONS (4)
  - Lymphangitis [Recovered/Resolved]
  - Arthropod bite [Recovered/Resolved]
  - Rash [Recovered/Resolved]
  - Inappropriate schedule of product administration [Not Recovered/Not Resolved]

NARRATIVE: CASE EVENT DATE: 20220301
